FAERS Safety Report 10094688 (Version 1)
Quarter: 2014Q2

REPORT INFORMATION
  Report Type: Spontaneous
  Country: US (occurrence: US)
  Receive Date: 20140422
  Receipt Date: 20140422
  Transmission Date: 20141212
  Serious: No
  Sender: FDA-Public Use
  Company Number: US-BAYER-2014-058340

PATIENT
  Age: 78 Year
  Sex: Female
  Weight: 56.69 kg

DRUGS (2)
  1. ALEVE LIQUID GELS [Suspect]
     Dosage: 2 DF, BID
     Route: 048
  2. SYNTHROID [Concomitant]

REACTIONS (2)
  - Intentional product misuse [None]
  - Extra dose administered [None]
